FAERS Safety Report 4635049-7 (Version None)
Quarter: 2005Q2

REPORT INFORMATION
  Report Type: 
  Country: None (occurrence: None)
  Receive Date: 20050414
  Receipt Date: 20030617
  Transmission Date: 20051028
  Serious: Yes (Hospitalization)
  Sender: FDA-Public Use
  Company Number: US-ROCHE-340359

PATIENT
  Sex: Male

DRUGS (12)
  1. FUZEON [Suspect]
     Indication: DRUG USE FOR UNKNOWN INDICATION
     Route: 058
     Dates: start: 20030601
  2. ASPIRIN [Concomitant]
  3. CARDIAC MEDICATION [Concomitant]
  4. PLAVIX [Concomitant]
  5. TOPROL-XL [Concomitant]
  6. NIACIN [Concomitant]
  7. NORVIR [Concomitant]
  8. KALETRA [Concomitant]
  9. AGENERASE [Concomitant]
  10. VIREAD [Concomitant]
  11. VIDEX [Concomitant]
     Indication: DRUG USE FOR UNKNOWN INDICATION
     Route: 065
  12. LEXIVA [Concomitant]
     Indication: DRUG USE FOR UNKNOWN INDICATION
     Route: 065

REACTIONS (29)
  - ACUTE MYOCARDIAL INFARCTION [None]
  - ANXIETY [None]
  - BACTERIAL INFECTION [None]
  - CHEST PAIN [None]
  - DEPRESSION [None]
  - DIARRHOEA [None]
  - FACIAL WASTING [None]
  - FATIGUE [None]
  - HEADACHE [None]
  - HYPERSENSITIVITY [None]
  - INFLUENZA LIKE ILLNESS [None]
  - INJECTION SITE ERYTHEMA [None]
  - INJECTION SITE EXTRAVASATION [None]
  - INJECTION SITE HAEMORRHAGE [None]
  - INJECTION SITE INDURATION [None]
  - INJECTION SITE PAIN [None]
  - INJECTION SITE PRURITUS [None]
  - INJECTION SITE SWELLING [None]
  - LYMPHADENOPATHY [None]
  - MALABSORPTION FROM INJECTION SITE [None]
  - MEDICATION ERROR [None]
  - NASOPHARYNGITIS [None]
  - NAUSEA [None]
  - NO ADVERSE EFFECT [None]
  - RASH [None]
  - RASH SCALY [None]
  - SINUSITIS [None]
  - T-LYMPHOCYTE COUNT DECREASED [None]
  - VOMITING [None]
